FAERS Safety Report 4889360-5 (Version None)
Quarter: 2006Q1

REPORT INFORMATION
  Report Type: 
  Country: None (occurrence: None)
  Receive Date: 20060120
  Receipt Date: 20060120
  Transmission Date: 20060701
  Serious: No
  Sender: FDA-Public Use
  Company Number: None

PATIENT

DRUGS (1)
  1. TRILEPTAL [Suspect]

REACTIONS (21)
  - AGGRESSION [None]
  - AGITATION [None]
  - ANHEDONIA [None]
  - APATHY [None]
  - ASTHENIA [None]
  - BURNING SENSATION [None]
  - CHEST DISCOMFORT [None]
  - CHEST PAIN [None]
  - DISCOMFORT [None]
  - FEELING ABNORMAL [None]
  - FRUSTRATION [None]
  - IMPATIENCE [None]
  - INFLAMMATION [None]
  - IRRITABILITY [None]
  - MOOD SWINGS [None]
  - MUSCULOSKELETAL CHEST PAIN [None]
  - MUSCULOSKELETAL STIFFNESS [None]
  - PHARYNGOLARYNGEAL PAIN [None]
  - SELF-INJURIOUS IDEATION [None]
  - STRESS [None]
  - THINKING ABNORMAL [None]
